FAERS Safety Report 17811311 (Version 1)
Quarter: 2020Q2

REPORT INFORMATION
  Report Type: Spontaneous
  Country: HR (occurrence: HR)
  Receive Date: 20200521
  Receipt Date: 20200521
  Transmission Date: 20200714
  Serious: Yes (Other)
  Sender: FDA-Public Use
  Company Number: HR-PFIZER INC-2020200874

PATIENT
  Sex: Male

DRUGS (4)
  1. METHADONE [Suspect]
     Active Substance: METHADONE HYDROCHLORIDE
     Dosage: UNK
     Route: 048
     Dates: start: 20200227, end: 20200227
  2. DIAZEPAM. [Suspect]
     Active Substance: DIAZEPAM
     Dosage: 150 MG, 1X/DAY
     Route: 048
     Dates: start: 20200227, end: 20200227
  3. MIRTAZAPINE. [Suspect]
     Active Substance: MIRTAZAPINE
     Dosage: 100 MG, 1X/DAY
     Route: 048
     Dates: start: 20200227, end: 20200227
  4. LYRICA [Suspect]
     Active Substance: PREGABALIN
     Dosage: 1500 MG, 1X/DAY
     Route: 048
     Dates: start: 20200227, end: 20200227

REACTIONS (3)
  - Drug abuse [Unknown]
  - Hypotension [Unknown]
  - Intentional overdose [Unknown]

NARRATIVE: CASE EVENT DATE: 20200227
